FAERS Safety Report 6725423-7 (Version None)
Quarter: 2010Q2

REPORT INFORMATION
  Report Type: 
  Country: None (occurrence: None)
  Receive Date: 20100513
  Receipt Date: 20100513
  Transmission Date: 20101027
  Serious: Yes (Other)
  Sender: FDA-Public Use
  Company Number: None

PATIENT
  Sex: Female
  Weight: 86.5 kg

DRUGS (3)
  1. EPIRUBICIN [Suspect]
     Indication: BREAST CANCER
     Dosage: 205 MG IV Q 3 WKS
     Dates: start: 20100111
  2. CYCLOPHOSPHAMIDE [Suspect]
     Dosage: 1025 MG IV Q 3 WKS
     Dates: start: 20100111
  3. FLUOROURACIL [Concomitant]

REACTIONS (2)
  - FEBRILE NEUTROPENIA [None]
  - PYREXIA [None]
